FAERS Safety Report 11287477 (Version 1)
Quarter: 2015Q2

REPORT INFORMATION
  Report Type: Spontaneous
  Country: US (occurrence: None)
  Receive Date: 20150623
  Receipt Date: 20150623
  Transmission Date: 20150821
  Serious: Yes (Hospitalization, Other)
  Sender: FDA-Public Use
  Company Number: RB-72124-2015

PATIENT
  Age: 19 Year
  Sex: Female

DRUGS (1)
  1. MUCINEX [Suspect]
     Active Substance: GUAIFENESIN
     Indication: DRUG ABUSE
     Dosage: (30 TO 40 TABLETS AT A TIME EVERY DAY FOR A FEW MONTHS UNKNOWN)

REACTIONS (5)
  - Intentional overdose [None]
  - Drug abuse [None]
  - Insomnia [None]
  - Hallucination [None]
  - Incorrect drug administration duration [None]
